FAERS Safety Report 25713701 (Version 2)
Quarter: 2025Q3

REPORT INFORMATION
  Report Type: Spontaneous
  Country: EU (occurrence: EU)
  Receive Date: 20250822
  Receipt Date: 20250910
  Transmission Date: 20251020
  Serious: Yes (Life-Threatening, Hospitalization)
  Sender: BEIGENE
  Company Number: None

PATIENT
  Age: 73 Year

DRUGS (2)
  1. BRUKINSA [Suspect]
     Active Substance: ZANUBRUTINIB
     Indication: Chronic lymphocytic leukaemia
  2. ELIQUIS [Concomitant]
     Active Substance: APIXABAN

REACTIONS (1)
  - Cardiac tamponade [Recovered/Resolved]
